FAERS Safety Report 10959316 (Version 1)
Quarter: 2015Q1

REPORT INFORMATION
  Report Type: Spontaneous
  Country: US (occurrence: US)
  Receive Date: 20150327
  Receipt Date: 20150327
  Transmission Date: 20150721
  Serious: Yes (Death)
  Sender: FDA-Public Use
  Company Number: US-CIPLA LTD.-2015US02431

PATIENT

DRUGS (6)
  1. CLONAZEPAM. [Suspect]
     Active Substance: CLONAZEPAM
  2. QUININE [Suspect]
     Active Substance: QUININE
  3. SERTRALINE [Suspect]
     Active Substance: SERTRALINE HYDROCHLORIDE
  4. ALPRAZOLAM. [Suspect]
     Active Substance: ALPRAZOLAM
  5. AMITRIPTYLINE [Suspect]
     Active Substance: AMITRIPTYLINE
  6. HEROIN [Suspect]
     Active Substance: DIACETYLMORPHINE

REACTIONS (1)
  - Drug abuse [Fatal]
